FAERS Safety Report 23258740 (Version 1)
Quarter: 2023Q4

REPORT INFORMATION
  Report Type: Spontaneous
  Country: US (occurrence: None)
  Receive Date: 20231202
  Receipt Date: 20231202
  Transmission Date: 20240109
  Serious: Yes (Hospitalization)
  Sender: FDA-Public Use
  Company Number: None

PATIENT
  Age: 28 Year
  Sex: Male
  Weight: 81.8 kg

DRUGS (6)
  1. CYCLOPHOSPHAMIDE [Suspect]
     Active Substance: CYCLOPHOSPHAMIDE
     Dates: end: 20230916
  2. DASATINIB [Suspect]
     Active Substance: DASATINIB
     Dates: end: 20231008
  3. DEXAMETHASONE [Suspect]
     Active Substance: DEXAMETHASONE
     Dates: end: 20230917
  4. DOXORUBICIN HYDROCHLORIDE [Suspect]
     Active Substance: DOXORUBICIN HYDROCHLORIDE
     Dates: end: 20230916
  5. MESNA [Suspect]
     Active Substance: MESNA
     Dates: end: 20230915
  6. VINCRISTINE SULFATE [Suspect]
     Active Substance: VINCRISTINE SULFATE
     Dates: end: 20230922

REACTIONS (4)
  - Blood culture positive [None]
  - Neutrophil count decreased [None]
  - White blood cell count decreased [None]
  - Sepsis [None]

NARRATIVE: CASE EVENT DATE: 20230921
